FAERS Safety Report 9955537 (Version 1)
Quarter: 2014Q1

REPORT INFORMATION
  Report Type: Report from Study
  Country: US (occurrence: US)
  Receive Date: 20140304
  Receipt Date: 20140304
  Transmission Date: 20141002
  Serious: No
  Sender: FDA-Public Use
  Company Number: US-ABBVIE-13P-163-1088943-00

PATIENT
  Age: 63 Year
  Sex: Female

DRUGS (5)
  1. HUMIRA [Suspect]
     Indication: RHEUMATOID ARTHRITIS
  2. KADIAN [Suspect]
     Indication: ARTHRALGIA
     Dosage: 1-2 TAB, DAILY
  3. BENICAR [Concomitant]
     Indication: HYPERTENSION
     Dosage: 40/25 MG, DAILY
  4. ALLEGRA [Concomitant]
     Indication: HYPERSENSITIVITY
     Dosage: 1-2 TABS DAILY
  5. UNKNOWN ALLERGY SHOT [Concomitant]
     Indication: HYPERSENSITIVITY

REACTIONS (6)
  - Skin exfoliation [Not Recovered/Not Resolved]
  - Dry skin [Not Recovered/Not Resolved]
  - Erythema [Not Recovered/Not Resolved]
  - Pruritus [Unknown]
  - Injection site pain [Unknown]
  - Rheumatoid arthritis [Not Recovered/Not Resolved]
